FAERS Safety Report 20959520 (Version 1)
Quarter: 2022Q2

REPORT INFORMATION
  Report Type: Spontaneous
  Country: JP (occurrence: JP)
  Receive Date: 20220614
  Receipt Date: 20220614
  Transmission Date: 20220721
  Serious: Yes (Other)
  Sender: FDA-Public Use
  Company Number: JP-ALLERGAN-2219020US

PATIENT

DRUGS (3)
  1. URSODIOL [Suspect]
     Active Substance: URSODIOL
     Indication: Product used for unknown indication
     Dosage: 600 MG, QD
     Route: 048
  2. AZATHIOPRINE [Suspect]
     Active Substance: AZATHIOPRINE
     Indication: Product used for unknown indication
     Dosage: 25 MG, QD
     Route: 048
  3. ADALIMUMAB [Concomitant]
     Active Substance: ADALIMUMAB

REACTIONS (8)
  - Adenocarcinoma [Unknown]
  - Proctocolectomy [Unknown]
  - Bile duct stenosis [Unknown]
  - Bile duct stone [Unknown]
  - Liver transplant [Unknown]
  - Portal hypertension [Unknown]
  - Collateral circulation [Unknown]
  - Hepatosplenomegaly [Unknown]
